FAERS Safety Report 8598669-3 (Version None)
Quarter: 2012Q3

REPORT INFORMATION
  Report Type: 
  Country: None (occurrence: None)
  Receive Date: 20120803
  Receipt Date: 20120724
  Transmission Date: 20120928
  Serious: Yes (Other)
  Sender: FDA-Public Use
  Company Number: DKLU1083193

PATIENT
  Age: 23 Month
  Sex: Female

DRUGS (11)
  1. BACTROBAN (MUPIROCIN) (2 %, OINTMENT) [Concomitant]
  2. LASIX (FUROSEMIDE) (10 MG/ML, ORAL SOLUTION) [Concomitant]
  3. LOCOID (HYDROCORTISONE BUTYRATE) (0.1%, OINTMENT) [Concomitant]
  4. KEPPRA [Concomitant]
  5. TOPAMAX (TOPIRAMATE) (25 MG, TABLET) [Concomitant]
  6. XENAZINE (TETRABENAZINE) (12.5 MG, TABLET) [Concomitant]
  7. PREVACID (LANSOPRAZOLE) (15 MG, ORODISPERSIBLE TABLET) [Concomitant]
  8. FLONASE (FLUTICASONE PROPIONATE) (50 UG, NASAL SPRAY, SOLUTION) [Concomitant]
  9. SABRIL [Suspect]
     Indication: INFANTILE SPASMS
     Dosage: 500 MG MILLIGRAM(S), 2 IN 1 D, ORAL
     Route: 048
     Dates: start: 20120607
  10. DIASTAT ACUDIAL (DIAZEPAM) [Concomitant]
  11. KLONOPIN (CLONAZEPAM) (0.125 MG, ORODISPERSIBLE TABLET) [Concomitant]

REACTIONS (8)
  - ALANINE AMINOTRANSFERASE DECREASED [None]
  - OEDEMA PERIPHERAL [None]
  - FACE OEDEMA [None]
  - BLOOD THYROID STIMULATING HORMONE INCREASED [None]
  - BLOOD PRESSURE DIASTOLIC DECREASED [None]
  - WEIGHT INCREASED [None]
  - HYPERTENSION [None]
  - CONTUSION [None]
